FAERS Safety Report 26093782 (Version 1)
Quarter: 2025Q4

REPORT INFORMATION
  Report Type: Spontaneous
  Country: US (occurrence: US)
  Receive Date: 20251126
  Receipt Date: 20251126
  Transmission Date: 20260118
  Serious: Yes (Life-Threatening, Hospitalization)
  Sender: CHEPLAPHARM
  Company Number: None

PATIENT
  Age: 45 Year
  Sex: Female

DRUGS (13)
  1. QUETIAPINE [Suspect]
     Active Substance: QUETIAPINE
     Dosage: PILLS
     Route: 048
  2. BUPROPION [Suspect]
     Active Substance: BUPROPION
     Dosage: EXTENDED RELEASE PILL
     Route: 048
  3. AMITRIPTYLINE [Suspect]
     Active Substance: AMITRIPTYLINE
     Dosage: PILLS
     Route: 048
  4. PRAZOSIN HYDROCHLORIDE [Suspect]
     Active Substance: PRAZOSIN HYDROCHLORIDE
     Dosage: PILLS
     Route: 048
  5. DULOXETINE [Suspect]
     Active Substance: DULOXETINE
     Dosage: PILLS
     Route: 048
  6. HYDROXYZINE [Suspect]
     Active Substance: HYDROXYZINE HYDROCHLORIDE
     Dosage: PILL
     Route: 048
  7. BUSPIRONE [Suspect]
     Active Substance: BUSPIRONE HYDROCHLORIDE
     Dosage: PILLS
     Route: 048
  8. DOXEPIN [Suspect]
     Active Substance: DOXEPIN
     Dosage: PILLS
     Route: 048
  9. MELOXICAM [Suspect]
     Active Substance: MELOXICAM
     Dosage: PILLS
     Route: 048
  10. LOPERAMIDE [Suspect]
     Active Substance: LOPERAMIDE
     Dosage: PILLS
     Route: 048
  11. LAMOTRIGINE [Suspect]
     Active Substance: LAMOTRIGINE
     Dosage: PILLS
     Route: 048
  12. METFORMIN [Suspect]
     Active Substance: METFORMIN HYDROCHLORIDE
     Dosage: PILLS
     Route: 048
  13. PROPOFOL [Concomitant]
     Active Substance: PROPOFOL
     Indication: Sedation

REACTIONS (8)
  - Generalised tonic-clonic seizure [Unknown]
  - Cardiogenic shock [Unknown]
  - Corneal reflex decreased [Unknown]
  - Pupillary reflex impaired [Unknown]
  - Areflexia [Unknown]
  - Bezoar [Unknown]
  - Myoclonus [Unknown]
  - Intentional overdose [Unknown]
